FAERS Safety Report 17951057 (Version 3)
Quarter: 2021Q2

REPORT INFORMATION
  Report Type: Spontaneous
  Country: US (occurrence: US)
  Receive Date: 20200626
  Receipt Date: 20210427
  Transmission Date: 20210717
  Serious: Yes (Other)
  Sender: FDA-Public Use
  Company Number: US-PFIZER INC-2020245654

PATIENT
  Age: 65 Year
  Sex: Male

DRUGS (2)
  1. XANAX XR [Suspect]
     Active Substance: ALPRAZOLAM
     Indication: ANXIETY DISORDER
     Dosage: 1 MG, 1X/DAY
     Dates: start: 201111
  2. XANAX XR [Suspect]
     Active Substance: ALPRAZOLAM
     Dosage: 0.5 MG, AS NEEDED (HE TAKES ONE IN THE MORNING WHEN NEEDED)

REACTIONS (3)
  - Drug ineffective [Unknown]
  - Plasma cell myeloma [Unknown]
  - Immune system disorder [Unknown]
